FAERS Safety Report 20531449 (Version 5)
Quarter: 2024Q1

REPORT INFORMATION
  Report Type: Spontaneous
  Country: US (occurrence: US)
  Receive Date: 20220301
  Receipt Date: 20240116
  Transmission Date: 20240409
  Serious: No
  Sender: FDA-Public Use
  Company Number: US-SA-SAC20220228000983

PATIENT
  Age: 64 Year
  Sex: Female

DRUGS (2)
  1. DUPIXENT [Suspect]
     Active Substance: DUPILUMAB
     Indication: Dermatitis atopic
     Dosage: 600 MG, 1X
     Route: 058
     Dates: start: 202201, end: 202201
  2. DUPIXENT [Suspect]
     Active Substance: DUPILUMAB
     Dosage: 300 MG, QOW
     Route: 058

REACTIONS (4)
  - Illness [Unknown]
  - Food poisoning [Unknown]
  - Skin exfoliation [Unknown]
  - Eczema [Unknown]

NARRATIVE: CASE EVENT DATE: 20240101
